FAERS Safety Report 13760668 (Version 3)
Quarter: 2017Q4

REPORT INFORMATION
  Report Type: Report from Study
  Country: US (occurrence: US)
  Receive Date: 20170717
  Receipt Date: 20171004
  Transmission Date: 20180320
  Serious: Yes (Hospitalization, Other)
  Sender: FDA-Public Use
  Company Number: US-SEATTLE GENETICS-2017SGN01755

PATIENT
  Age: 49 Year
  Sex: Male
  Weight: 80 kg

DRUGS (12)
  1. BRENTUXIMAB VEDOTIN [Suspect]
     Active Substance: BRENTUXIMAB VEDOTIN
     Dosage: 1.8 MG/KG, UNK
     Route: 042
     Dates: start: 20150930, end: 20160609
  2. DEXAMETHASONE. [Suspect]
     Active Substance: DEXAMETHASONE
     Indication: ANAPLASTIC LARGE CELL LYMPHOMA T- AND NULL-CELL TYPES
     Dosage: 20 MG, UNK
     Route: 065
  3. BRENTUXIMAB VEDOTIN [Suspect]
     Active Substance: BRENTUXIMAB VEDOTIN
     Indication: ANAPLASTIC LARGE CELL LYMPHOMA T- AND NULL-CELL TYPES
     Dosage: 1.8 MG/KG, UNK
     Route: 042
     Dates: start: 20150930, end: 20150930
  4. VANCOMYCIN [Concomitant]
     Active Substance: VANCOMYCIN
  5. ACICLOVIR [Concomitant]
     Active Substance: ACYCLOVIR
  6. FLUCONAZOLE. [Concomitant]
     Active Substance: FLUCONAZOLE
  7. SULFAMETHOXAZOLE, TRIMETHOPRIM [Concomitant]
     Active Substance: SULFAMETHOXAZOLE\TRIMETHOPRIM
  8. IXAZOMIB [Suspect]
     Active Substance: IXAZOMIB
     Indication: CHRONIC GRAFT VERSUS HOST DISEASE
     Dosage: 4 MG, 1/WEEK
     Route: 048
     Dates: start: 20150707, end: 20150728
  9. METHOTREXATE. [Concomitant]
     Active Substance: METHOTREXATE
     Dosage: 5 MG/M2, UNK
  10. METHOTREXATE. [Concomitant]
     Active Substance: METHOTREXATE
     Dosage: 5 MG/M2, UNK
  11. ENOXAPARIN SODIUM. [Concomitant]
     Active Substance: ENOXAPARIN SODIUM
  12. TACROLIMUS. [Concomitant]
     Active Substance: TACROLIMUS

REACTIONS (3)
  - Pelvic pain [Recovered/Resolved]
  - Pyrexia [Recovered/Resolved]
  - Acute respiratory distress syndrome [Recovered/Resolved]

NARRATIVE: CASE EVENT DATE: 20150925
